FAERS Safety Report 10258536 (Version 1)
Quarter: 2014Q2

REPORT INFORMATION
  Report Type: Report from Study
  Country: US (occurrence: US)
  Receive Date: 20140625
  Receipt Date: 20140625
  Transmission Date: 20141212
  Serious: Yes (Hospitalization)
  Sender: FDA-Public Use
  Company Number: PHEH2014US012717

PATIENT
  Age: 87 Year
  Sex: Male
  Weight: 78.47 kg

DRUGS (1)
  1. EXJADE [Suspect]
     Indication: HAEMOCHROMATOSIS
     Dosage: 1500 MG, QD
     Route: 048

REACTIONS (4)
  - Herpes zoster [Recovering/Resolving]
  - Facial pain [Unknown]
  - Decreased appetite [Unknown]
  - Weight decreased [Unknown]
